FAERS Safety Report 8470221-X (Version None)
Quarter: 2012Q2

REPORT INFORMATION
  Report Type: 
  Country: None (occurrence: None)
  Receive Date: 20120621
  Receipt Date: 20120621
  Transmission Date: 20120825
  Serious: No
  Sender: FDA-Public Use
  Company Number: None

PATIENT
  Sex: Male
  Weight: 72.5755 kg

DRUGS (2)
  1. AVASTIN [Suspect]
  2. AVASTIN [Suspect]
     Indication: RECTAL CANCER
     Dosage: 1113MG EVERY 21 DAYS IV DRIP
     Route: 041
     Dates: start: 20111208, end: 20120619

REACTIONS (5)
  - TREMOR [None]
  - NAUSEA [None]
  - CHILLS [None]
  - DYSPNOEA [None]
  - COUGH [None]
